FAERS Safety Report 13584648 (Version 4)
Quarter: 2019Q1

REPORT INFORMATION
  Report Type: Report from Study
  Country: JP (occurrence: JP)
  Receive Date: 20170526
  Receipt Date: 20190111
  Transmission Date: 20190417
  Serious: Yes (Death, Other)
  Sender: FDA-Public Use
  Company Number: JP-BRISTOL-MYERS SQUIBB COMPANY-BMS-2017-029215

PATIENT
  Age: 73 Year
  Sex: Female
  Weight: 61 kg

DRUGS (8)
  1. DEXAMETHASONE. [Suspect]
     Active Substance: DEXAMETHASONE
     Indication: PRODUCT USED FOR UNKNOWN INDICATION
     Dosage: 20 MG, Q2WK
     Route: 048
     Dates: start: 20170316, end: 20170330
  2. DEXAMETHASONE. [Suspect]
     Active Substance: DEXAMETHASONE
     Indication: PRODUCT USED FOR UNKNOWN INDICATION
     Dosage: 8 MG, Q2WK
     Route: 041
     Dates: start: 20170316, end: 20170330
  3. M_BMS-901608_LENALIDOMIDE (LENALIDOMIDE) [Suspect]
     Active Substance: LENALIDOMIDE
     Indication: PLASMA CELL MYELOMA
     Dosage: 10 MG, SINGLE
     Route: 048
     Dates: start: 20170119, end: 20170329
  4. ELOTUZUMAB. [Suspect]
     Active Substance: ELOTUZUMAB
     Indication: PLASMA CELL MYELOMA
     Dosage: 600 MG/M2, QWK
     Route: 041
     Dates: start: 20170119, end: 20170309
  5. ELOTUZUMAB. [Suspect]
     Active Substance: ELOTUZUMAB
     Indication: PRODUCT USED FOR UNKNOWN INDICATION
     Dosage: 600 MG/M2, Q2WK
     Route: 041
     Dates: start: 20170316, end: 20170330
  6. DEXAMETHASONE. [Suspect]
     Active Substance: DEXAMETHASONE
     Indication: PLASMA CELL MYELOMA
     Dosage: 20 MG, QWK
     Route: 048
     Dates: start: 20170119, end: 20170309
  7. DEXAMETHASONE. [Suspect]
     Active Substance: DEXAMETHASONE
     Indication: PLASMA CELL MYELOMA
     Dosage: 8 MG, QWK
     Route: 041
     Dates: start: 20170119, end: 20170309
  8. VICCLOX                            /00587301/ [Concomitant]
     Active Substance: ACYCLOVIR SODIUM
     Indication: PROPHYLAXIS
     Dosage: 200 MG, SINGLE
     Route: 065
     Dates: end: 20170329

REACTIONS (2)
  - Pancreatic carcinoma [Fatal]
  - Deep vein thrombosis [Recovering/Resolving]

NARRATIVE: CASE EVENT DATE: 20170309
